FAERS Safety Report 10213264 (Version 1)
Quarter: 2014Q2

REPORT INFORMATION
  Report Type: Spontaneous
  Country: US (occurrence: None)
  Receive Date: 20140529
  Receipt Date: 20140529
  Transmission Date: 20141212
  Serious: Yes (Hospitalization, Other)
  Sender: FDA-Public Use
  Company Number: US-ZYDUS-003543

PATIENT
  Age: 17 Year
  Sex: Female

DRUGS (1)
  1. LEVETIRACETAM [Suspect]
     Indication: CONVULSION

REACTIONS (4)
  - Tubulointerstitial nephritis [None]
  - Nephritis allergic [None]
  - Eosinophilic cystitis [None]
  - Hydronephrosis [None]
